FAERS Safety Report 7416446-3 (Version None)
Quarter: 2011Q2

REPORT INFORMATION
  Report Type: 
  Country: None (occurrence: None)
  Receive Date: 20110414
  Receipt Date: 20110411
  Transmission Date: 20111010
  Serious: Yes (Death, Other)
  Sender: FDA-Public Use
  Company Number: US-ABBOTT-11P-163-0718120-00

PATIENT

DRUGS (2)
  1. UNKNOWN MEDICATIONS [Concomitant]
     Indication: PRODUCT USED FOR UNKNOWN INDICATION
  2. DEPAKOTE ER [Suspect]
     Indication: CONVULSION
     Dates: start: 19970101, end: 19970101

REACTIONS (4)
  - STAPHYLOCOCCAL INFECTION [None]
  - CONVULSION [None]
  - NEUROGENIC BLADDER [None]
  - CARDIAC FAILURE [None]
